FAERS Safety Report 15012812 (Version 7)
Quarter: 2023Q2

REPORT INFORMATION
  Report Type: Spontaneous
  Country: GR (occurrence: GR)
  Receive Date: 20180614
  Receipt Date: 20230425
  Transmission Date: 20230722
  Serious: Yes (Hospitalization, Other)
  Sender: FDA-Public Use
  Company Number: PHHY2015GR177875

PATIENT
  Age: 54 Year
  Sex: Female

DRUGS (36)
  1. ZOLEDRONIC ACID [Suspect]
     Active Substance: ZOLEDRONIC ACID
     Indication: Metastases to bone
     Dosage: 1 DOSAGE FORM, CYCLIC
     Route: 042
     Dates: start: 2008, end: 2008
  2. ZOLEDRONIC ACID [Suspect]
     Active Substance: ZOLEDRONIC ACID
     Indication: Invasive ductal breast carcinoma
     Dosage: UNK QCYCLE
     Route: 065
     Dates: start: 2008
  3. ZOLEDRONIC ACID [Suspect]
     Active Substance: ZOLEDRONIC ACID
     Dosage: UNK
     Route: 065
  4. PACLITAXEL [Suspect]
     Active Substance: PACLITAXEL
     Indication: Invasive ductal breast carcinoma
     Dosage: 1 DOSAGE FORM, CYCLIC
     Route: 065
     Dates: start: 2008, end: 2008
  5. PACLITAXEL [Suspect]
     Active Substance: PACLITAXEL
     Dosage: UNK, QCYCLE
     Route: 065
     Dates: start: 2008
  6. GEMCITABINE [Suspect]
     Active Substance: GEMCITABINE
     Indication: Invasive ductal breast carcinoma
     Dosage: 1 DOSAGE FORM, CYCLIC
     Route: 065
     Dates: start: 2008, end: 2008
  7. GEMCITABINE [Suspect]
     Active Substance: GEMCITABINE
     Indication: Metastases to bone
     Dosage: UNK, QCYCLE
     Route: 065
     Dates: start: 2008
  8. GEMCITABINE [Suspect]
     Active Substance: GEMCITABINE
     Dosage: UNK
     Route: 065
  9. DOCETAXEL [Suspect]
     Active Substance: DOCETAXEL
     Indication: Invasive ductal breast carcinoma
     Dosage: 1 DOSAGE FORM, CYCLIC
     Route: 042
     Dates: start: 2008, end: 2008
  10. DOCETAXEL [Suspect]
     Active Substance: DOCETAXEL
     Indication: Metastases to bone
     Dosage: UNK, QCYCLE
     Route: 065
     Dates: start: 2008
  11. CAPECITABINE [Suspect]
     Active Substance: CAPECITABINE
     Indication: Invasive ductal breast carcinoma
     Dosage: 1 DOSAGE FORM, CYCLIC
     Route: 042
     Dates: start: 2008, end: 2008
  12. CAPECITABINE [Suspect]
     Active Substance: CAPECITABINE
     Dosage: UNK, QCYCLE
     Route: 065
     Dates: start: 2008
  13. CYCLOPHOSPHAMIDE [Suspect]
     Active Substance: CYCLOPHOSPHAMIDE
     Indication: Invasive ductal breast carcinoma
     Dosage: 1 DOSAGE FORM, CYCLIC
     Route: 065
  14. CYCLOPHOSPHAMIDE [Suspect]
     Active Substance: CYCLOPHOSPHAMIDE
     Dosage: UNK, QCYCLE
     Route: 065
  15. NOVANTRONE [Suspect]
     Active Substance: MITOXANTRONE HYDROCHLORIDE
     Indication: Invasive ductal breast carcinoma
     Dosage: 1 DOSAGE FORM, CYCLIC
     Route: 065
  16. NOVANTRONE [Suspect]
     Active Substance: MITOXANTRONE HYDROCHLORIDE
     Dosage: UNK, QCYCLE
     Route: 065
  17. NOVANTRONE [Suspect]
     Active Substance: MITOXANTRONE HYDROCHLORIDE
     Dosage: UNK
     Route: 065
  18. FLUOROURACIL [Suspect]
     Active Substance: FLUOROURACIL
     Indication: Invasive ductal breast carcinoma
     Dosage: 1 DOSAGE FORM, CYCLIC
     Route: 065
  19. FLUOROURACIL [Suspect]
     Active Substance: FLUOROURACIL
     Dosage: UNK ( QCYCLE)
     Route: 065
  20. VINORELBINE [Suspect]
     Active Substance: VINORELBINE TARTRATE
     Indication: Invasive ductal breast carcinoma
     Dosage: 1 DOSAGE FORM, CYCLIC
     Route: 065
     Dates: start: 2008, end: 2008
  21. VINORELBINE [Suspect]
     Active Substance: VINORELBINE TARTRATE
     Indication: Metastases to bone
     Dosage: UNK ( QCYCLE)
     Route: 065
     Dates: start: 2008
  22. CARBOPLATIN [Suspect]
     Active Substance: CARBOPLATIN
     Indication: Invasive ductal breast carcinoma
     Dosage: 1 DOSAGE FORM, CYCLIC
     Route: 065
     Dates: end: 2008
  23. CARBOPLATIN [Suspect]
     Active Substance: CARBOPLATIN
     Indication: Metastases to bone
     Dosage: UNK
     Route: 065
  24. CARBOPLATIN [Suspect]
     Active Substance: CARBOPLATIN
     Dosage: UNK, (QCYCLIC)
     Route: 065
  25. ERIBULIN [Suspect]
     Active Substance: ERIBULIN
     Indication: Invasive ductal breast carcinoma
     Dosage: 1 DOSAGE FORM, CYCLIC
     Route: 042
     Dates: start: 2008, end: 2008
  26. ERIBULIN [Suspect]
     Active Substance: ERIBULIN
     Indication: Metastases to bone
     Dosage: UNK
     Route: 065
  27. ERIBULIN [Suspect]
     Active Substance: ERIBULIN
     Dosage: UNK UNK QCYCLE
     Route: 042
     Dates: start: 2008
  28. BEVACIZUMAB [Suspect]
     Active Substance: BEVACIZUMAB
     Indication: Invasive ductal breast carcinoma
     Dosage: 1 DOSAGE FORM, CYCLIC
     Route: 065
     Dates: start: 2008, end: 2008
  29. BEVACIZUMAB [Suspect]
     Active Substance: BEVACIZUMAB
     Indication: Metastases to bone
     Dosage: UNK (QCYCLE)
     Route: 065
     Dates: start: 2008
  30. INIPARIB [Suspect]
     Active Substance: INIPARIB
     Indication: Invasive ductal breast carcinoma
     Dosage: 1 DOSAGE FORM, CYCLIC
     Route: 042
     Dates: start: 2008, end: 2008
  31. INIPARIB [Suspect]
     Active Substance: INIPARIB
     Indication: Metastases to bone
     Dosage: UNK  (QCYCLE)
     Route: 065
  32. INIPARIB [Suspect]
     Active Substance: INIPARIB
     Dosage: UNK
     Route: 065
  33. DOXORUBICIN HYDROCHLORIDE [Suspect]
     Active Substance: DOXORUBICIN HYDROCHLORIDE
     Indication: Invasive ductal breast carcinoma
     Dosage: UNK
     Route: 065
     Dates: start: 2008, end: 2008
  34. DOXORUBICIN HYDROCHLORIDE [Suspect]
     Active Substance: DOXORUBICIN HYDROCHLORIDE
     Indication: Metastases to bone
     Dosage: UNK (QCYCLE)
     Route: 048
     Dates: start: 2008
  35. DOXORUBICIN HYDROCHLORIDE [Suspect]
     Active Substance: DOXORUBICIN HYDROCHLORIDE
     Dosage: UNK
     Route: 065
  36. LETROZOLE [Concomitant]
     Active Substance: LETROZOLE
     Indication: Metastases to bone
     Dosage: UNK
     Route: 042

REACTIONS (7)
  - Invasive ductal breast carcinoma [Unknown]
  - Metastases to bone [Unknown]
  - Anaemia [Unknown]
  - Malignant neoplasm progression [Unknown]
  - Malignant neoplasm progression [Unknown]
  - Thrombocytopenia [Unknown]
  - Product use in unapproved indication [Unknown]

NARRATIVE: CASE EVENT DATE: 20080101
